FAERS Safety Report 6507387-4 (Version None)
Quarter: 2009Q4

REPORT INFORMATION
  Report Type: 
  Country: None (occurrence: None)
  Receive Date: 20091221
  Receipt Date: 20091207
  Transmission Date: 20100525
  Serious: Yes (Death, Hospitalization)
  Sender: FDA-Public Use
  Company Number: US-GENENTECH-237022

PATIENT
  Age: 49 Year
  Sex: Female

DRUGS (2)
  1. RITUXAN [Suspect]
     Indication: NON-HODGKIN'S LYMPHOMA
     Dosage: 375 MG/M2, UNK
     Route: 042
     Dates: start: 20020304, end: 20020726
  2. FLUDARABINE [Suspect]
     Indication: NON-HODGKIN'S LYMPHOMA
     Dosage: 25 MG/M2, UNK
     Route: 042
     Dates: start: 20020304, end: 20020726

REACTIONS (2)
  - ENCEPHALOPATHY [None]
  - FALSE NEGATIVE LABORATORY RESULT [None]
